FAERS Safety Report 19390794 (Version 1)
Quarter: 2021Q2

REPORT INFORMATION
  Report Type: Spontaneous
  Country: US (occurrence: US)
  Receive Date: 20210608
  Receipt Date: 20210608
  Transmission Date: 20210717
  Serious: No
  Sender: FDA-Public Use
  Company Number: US-SA-2021SA188014

PATIENT
  Sex: Female

DRUGS (18)
  1. DUPIXENT [Suspect]
     Active Substance: DUPILUMAB
     Dosage: 300 MG, QOW
     Route: 058
  2. UREA. [Concomitant]
     Active Substance: UREA
  3. DUPIXENT [Suspect]
     Active Substance: DUPILUMAB
     Dosage: 600MG, 1X
     Route: 058
  4. PREVIDENT [Concomitant]
     Active Substance: SODIUM FLUORIDE
  5. TRIAMCINOLONE ACETONIDE. [Concomitant]
     Active Substance: TRIAMCINOLONE ACETONIDE
  6. FLUCONAZOLE. [Concomitant]
     Active Substance: FLUCONAZOLE
  7. AMITRIPTYLINE HCL [Concomitant]
     Active Substance: AMITRIPTYLINE
  8. HYDROCORTISONE. [Concomitant]
     Active Substance: HYDROCORTISONE
  9. FLUOCINONIDE. [Concomitant]
     Active Substance: FLUOCINONIDE
  10. TACROLIMUS. [Concomitant]
     Active Substance: TACROLIMUS
  11. BENZONATATE. [Concomitant]
     Active Substance: BENZONATATE
  12. BUPROPION HCL [Concomitant]
     Active Substance: BUPROPION HYDROCHLORIDE
  13. ALCLOMETASONE DIPROPIONATE. [Concomitant]
     Active Substance: ALCLOMETASONE DIPROPIONATE
  14. LEVOFLOXACIN. [Concomitant]
     Active Substance: LEVOFLOXACIN
  15. NYSTOP [Concomitant]
     Active Substance: NYSTATIN
  16. PROCTOZONE HC [Concomitant]
     Active Substance: HYDROCORTISONE
  17. MOMETASONE FUROATE. [Concomitant]
     Active Substance: MOMETASONE FUROATE
  18. TERCONAZOLE. [Concomitant]
     Active Substance: TERCONAZOLE

REACTIONS (1)
  - Lymphadenopathy [Unknown]
